FAERS Safety Report 6179868-7 (Version None)
Quarter: 2009Q2

REPORT INFORMATION
  Report Type: 
  Country: None (occurrence: None)
  Receive Date: 20090505
  Receipt Date: 20090427
  Transmission Date: 20091009
  Serious: Yes (Hospitalization)
  Sender: FDA-Public Use
  Company Number: ES-JNJFOC-20090406023

PATIENT
  Age: 91 Year
  Sex: Female

DRUGS (6)
  1. REMINYL [Suspect]
     Indication: DRUG USE FOR UNKNOWN INDICATION
     Route: 048
  2. TRIMETAZIDINE [Interacting]
     Indication: DRUG USE FOR UNKNOWN INDICATION
     Route: 048
  3. ADALAT [Interacting]
     Indication: DRUG USE FOR UNKNOWN INDICATION
     Route: 048
  4. ADIRO [Interacting]
     Indication: DRUG USE FOR UNKNOWN INDICATION
     Route: 048
  5. BOSPORON [Interacting]
     Indication: DRUG USE FOR UNKNOWN INDICATION
     Route: 048
  6. FOSAMAX SEMANAL [Interacting]
     Indication: DRUG USE FOR UNKNOWN INDICATION
     Route: 048

REACTIONS (4)
  - DRUG INTERACTION [None]
  - GASTRIC ULCER [None]
  - HAEMATEMESIS [None]
  - MELAENA [None]
